FAERS Safety Report 20757835 (Version 1)
Quarter: 2022Q2

REPORT INFORMATION
  Report Type: Spontaneous
  Country: US (occurrence: None)
  Receive Date: 20220426
  Receipt Date: 20220426
  Transmission Date: 20220721
  Serious: Yes (Other)
  Sender: FDA-Public Use
  Company Number: None

PATIENT
  Age: 53 Year
  Sex: Female

DRUGS (1)
  1. KYNMOBI [Suspect]
     Active Substance: APOMORPHINE HYDROCHLORIDE
     Dates: start: 20220401

REACTIONS (5)
  - Oral pruritus [None]
  - Lip swelling [None]
  - Throat irritation [None]
  - Drug hypersensitivity [None]
  - Instillation site pruritus [None]

NARRATIVE: CASE EVENT DATE: 20220425
